FAERS Safety Report 4864594-4 (Version None)
Quarter: 2005Q4

REPORT INFORMATION
  Report Type: 
  Country: None (occurrence: None)
  Receive Date: 20051222
  Receipt Date: 20051213
  Transmission Date: 20060501
  Serious: Yes (Hospitalization)
  Sender: FDA-Public Use
  Company Number: PHRM2005FR03270

PATIENT
  Age: 24 Year
  Sex: Male

DRUGS (7)
  1. TEGRETOL [Suspect]
     Indication: CHILDHOOD PSYCHOSIS
     Dosage: 400 MG, BID
     Route: 048
     Dates: end: 20051020
  2. LOXAPAC [Suspect]
     Indication: CHILDHOOD PSYCHOSIS
     Dosage: 100 MG, QD
     Route: 048
     Dates: end: 20051008
  3. FLUANXOL - SLOW RELEASE [Suspect]
     Indication: CHILDHOOD PSYCHOSIS
     Dosage: 20 MG/ML, TIW
     Route: 030
     Dates: end: 20050927
  4. STILNOX [Concomitant]
     Indication: CHILDHOOD PSYCHOSIS
     Dosage: 10 MG/DAY
     Route: 048
  5. VALIUM [Concomitant]
     Indication: CHILDHOOD PSYCHOSIS
     Dosage: 10 MG, TID
     Route: 048
     Dates: end: 20051020
  6. SERESTA [Concomitant]
     Indication: CHILDHOOD PSYCHOSIS
     Dosage: 50 MG, QD
     Route: 048
     Dates: end: 20051020
  7. TRANXENE [Concomitant]

REACTIONS (13)
  - ASPARTATE AMINOTRANSFERASE INCREASED [None]
  - ASPIRATION TRACHEAL [None]
  - BLOOD CREATINE PHOSPHOKINASE INCREASED [None]
  - BRONCHITIS [None]
  - CATATONIA [None]
  - ENTERAL NUTRITION [None]
  - HYPERHIDROSIS [None]
  - HYPERTHERMIA [None]
  - INCONTINENCE [None]
  - LEUKOCYTOSIS [None]
  - MUTISM [None]
  - NEUROLEPTIC MALIGNANT SYNDROME [None]
  - NEUTROPHILIA [None]
